FAERS Safety Report 25491321 (Version 1)
Quarter: 2025Q2

REPORT INFORMATION
  Report Type: Spontaneous
  Country: US (occurrence: US)
  Receive Date: 20250629
  Receipt Date: 20250629
  Transmission Date: 20250717
  Serious: Yes (Other)
  Sender: LUPIN
  Company Number: US-LUPIN PHARMACEUTICALS INC.-2025-05388

PATIENT

DRUGS (1)
  1. METRONIDAZOLE [Suspect]
     Active Substance: METRONIDAZOLE
     Indication: Drug provocation test
     Route: 065

REACTIONS (1)
  - Anaphylactic reaction [Unknown]
